FAERS Safety Report 9805194 (Version 1)
Quarter: 2014Q1

REPORT INFORMATION
  Report Type: Spontaneous
  Country: FR (occurrence: FR)
  Receive Date: 20140109
  Receipt Date: 20140109
  Transmission Date: 20141002
  Serious: Yes (Hospitalization)
  Sender: FDA-Public Use
  Company Number: FR-ROCHE-1329700

PATIENT
  Age: 55 Year
  Sex: Male
  Weight: 87 kg

DRUGS (9)
  1. CELLCEPT [Suspect]
     Indication: HEART TRANSPLANT
     Route: 048
     Dates: start: 201307
  2. TAHOR [Suspect]
     Indication: HEART TRANSPLANT
     Route: 048
     Dates: end: 20131129
  3. NEORAL [Suspect]
     Indication: HEART TRANSPLANT
     Route: 048
     Dates: start: 201307, end: 20131201
  4. CORTANCYL [Concomitant]
     Route: 065
  5. VALACICLOVIR [Concomitant]
     Route: 065
  6. BACTRIM FORTE [Concomitant]
     Dosage: 1/4 TABLET
     Route: 065
  7. LASILIX [Concomitant]
     Route: 065
     Dates: start: 201304
  8. LASILIX [Concomitant]
     Route: 065
     Dates: start: 201311
  9. LASILIX [Concomitant]
     Route: 065
     Dates: start: 201312

REACTIONS (3)
  - Generalised oedema [Recovering/Resolving]
  - Ascites [Recovering/Resolving]
  - Oedema peripheral [Recovering/Resolving]
